FAERS Safety Report 10566331 (Version 1)
Quarter: 2014Q4

REPORT INFORMATION
  Report Type: Spontaneous
  Country: KZ (occurrence: KZ)
  Receive Date: 20141105
  Receipt Date: 20141105
  Transmission Date: 20150529
  Serious: Yes (Death)
  Sender: FDA-Public Use
  Company Number: KZ-OTSUKA-US-2014-13429

PATIENT

DRUGS (4)
  1. DACOGEN [Suspect]
     Active Substance: DECITABINE
     Indication: ACUTE MYELOID LEUKAEMIA
     Dosage: 35 ?G/ M 2,  UNKNOWN, 5 TIMES
     Route: 042
  2. DACOGEN [Suspect]
     Active Substance: DECITABINE
     Dosage: 35 ?G/ M 2, UNKNOWN, 5 TIMES
     Route: 042
  3. DACOGEN [Suspect]
     Active Substance: DECITABINE
     Indication: MYELODYSPLASTIC SYNDROME
     Dosage: 20 MG/M2, UNKNOWN, 5 TIMES
     Route: 042
  4. DACOGEN [Suspect]
     Active Substance: DECITABINE
     Dosage: 35 ?G/ M 2, UNKNOWN, 5 TIMES
     Route: 042

REACTIONS (2)
  - Cardiac failure [Fatal]
  - Cerebral ischaemia [Fatal]
